FAERS Safety Report 4328188-1 (Version None)
Quarter: 2004Q1

REPORT INFORMATION
  Report Type: 
  Country: None (occurrence: None)
  Receive Date: 20040331
  Receipt Date: 20040326
  Transmission Date: 20041129
  Serious: Yes (Other)
  Sender: FDA-Public Use
  Company Number: FR-GLAXOSMITHKLINE-A0505067A

PATIENT
  Age: 40 Year
  Sex: Female

DRUGS (1)
  1. NAVELBINE [Suspect]
     Indication: ACCIDENTAL EXPOSURE
     Route: 031
     Dates: start: 20040206, end: 20040206

REACTIONS (6)
  - ACCIDENTAL EXPOSURE [None]
  - CORNEAL ULCER [None]
  - EYE IRRITATION [None]
  - EYE PAIN [None]
  - EYE PRURITUS [None]
  - INFLAMMATION [None]
